FAERS Safety Report 7114448-8 (Version None)
Quarter: 2010Q4

REPORT INFORMATION
  Report Type: 
  Country: None (occurrence: None)
  Receive Date: 20101119
  Receipt Date: 20101105
  Transmission Date: 20110411
  Serious: Yes (Hospitalization)
  Sender: FDA-Public Use
  Company Number: US-ELI_LILLY_AND_COMPANY-US201011001886

PATIENT
  Age: 21 Year
  Sex: Male

DRUGS (6)
  1. CYMBALTA [Suspect]
     Indication: BIPOLAR I DISORDER
     Dosage: 60 MG, DAILY (1/D)
     Dates: start: 20100901
  2. ZYPREXA [Suspect]
     Indication: BIPOLAR I DISORDER
     Dosage: 10 MG, DAILY (1/D)
     Dates: start: 20101001
  3. DEPAKOTE [Concomitant]
  4. XANAX [Concomitant]
     Dosage: 1 MG, UNK
  5. CLONIDINE [Concomitant]
     Dosage: 0.5 UNK, UNK
  6. HEROIN [Concomitant]

REACTIONS (5)
  - DRUG DEPENDENCE [None]
  - INSOMNIA [None]
  - INTENTIONAL DRUG MISUSE [None]
  - MOOD SWINGS [None]
  - OFF LABEL USE [None]
